FAERS Safety Report 4690802-9 (Version None)
Quarter: 2005Q2

REPORT INFORMATION
  Report Type: 
  Country: None (occurrence: None)
  Receive Date: 20050610
  Receipt Date: 20050531
  Transmission Date: 20051028
  Serious: Yes (Hospitalization)
  Sender: FDA-Public Use
  Company Number: 2005BH000059

PATIENT
  Age: 65 Year
  Sex: Male

DRUGS (1)
  1. PROPLEX T [Suspect]

REACTIONS (5)
  - ACUTE MYOCARDIAL INFARCTION [None]
  - HEART SOUNDS ABNORMAL [None]
  - LOW DENSITY LIPOPROTEIN INCREASED [None]
  - LUNG CREPITATION [None]
  - VENTRICULAR DYSFUNCTION [None]
